FAERS Safety Report 20360862 (Version 1)
Quarter: 2022Q1

REPORT INFORMATION
  Report Type: 
  Country: None (occurrence: None)
  Receive Date: 20220121
  Receipt Date: 20220121
  Transmission Date: 20220423
  Serious: No
  Sender: FDA-Public Use
  Company Number: None

PATIENT
  Age: 82 Year
  Sex: Male

DRUGS (1)
  1. AZELASTINE HYDROCHLORIDE [Suspect]
     Active Substance: AZELASTINE HYDROCHLORIDE

REACTIONS (6)
  - Herpes dermatitis [Recovered/Resolved]
  - Dermatitis [Recovered/Resolved]
  - Dark circles under eyes [Recovered/Resolved]
  - Burning sensation [Unknown]
  - Skin irritation [Unknown]
  - Erythema [Unknown]
